FAERS Safety Report 8924429 (Version 1)
Quarter: 2012Q4

REPORT INFORMATION
  Report Type: 
  Country: GB (occurrence: GB)
  Receive Date: 20121126
  Receipt Date: 20121126
  Transmission Date: 20130627
  Serious: Yes (Death, Hospitalization)
  Sender: FDA-Public Use
  Company Number: PHHY2012GB066390

PATIENT
  Age: 47 Year
  Sex: Male
  Weight: 102 kg

DRUGS (4)
  1. OLANZAPINE [Suspect]
     Indication: SCHIZOPHRENIA
     Dosage: 20 mg, UNK
     Route: 048
     Dates: end: 20111128
  2. OLANZAPINE [Suspect]
     Dosage: 20 mg, UNK
     Route: 048
     Dates: start: 20111130
  3. ZYPREXA [Suspect]
     Indication: SCHIZOPHRENIA
     Dosage: 10 mg daily as needed up to a maximum dose of 20 mg for two or three days
     Route: 030
  4. MORPHINE [Concomitant]

REACTIONS (8)
  - Multi-organ failure [Fatal]
  - Sepsis [Not Recovered/Not Resolved]
  - Confusional state [Unknown]
  - Systemic candida [Not Recovered/Not Resolved]
  - Shock [Unknown]
  - Megacolon [Unknown]
  - Infarction [Unknown]
  - Ischaemia [Unknown]
